FAERS Safety Report 4512288-7 (Version None)
Quarter: 2004Q4

REPORT INFORMATION
  Report Type: 
  Country: None (occurrence: None)
  Receive Date: 20041129
  Receipt Date: 20041008
  Transmission Date: 20050328
  Serious: Yes (Other)
  Sender: FDA-Public Use
  Company Number: FR-GLAXOSMITHKLINE-B0347681A

PATIENT
  Age: 75 Year
  Sex: Female
  Weight: 58 kg

DRUGS (2)
  1. ZELITREX [Suspect]
     Indication: ANTIVIRAL PROPHYLAXIS
     Dosage: 500MG PER DAY
     Route: 048
     Dates: start: 20040201, end: 20041001
  2. ART 50 [Concomitant]
     Dosage: 50MG PER DAY
     Route: 048
     Dates: start: 20030101

REACTIONS (4)
  - FLANK PAIN [None]
  - NEPHROLITHIASIS [None]
  - PAIN [None]
  - RENAL COLIC [None]
